FAERS Safety Report 8830787 (Version 1)
Quarter: 2012Q4

REPORT INFORMATION
  Report Type: Report from Study
  Country: DE (occurrence: DE)
  Receive Date: 20121008
  Receipt Date: 20121008
  Transmission Date: 20130627
  Serious: Yes (Hospitalization)
  Sender: FDA-Public Use
  Company Number: DE-PFIZER INC-DE-WYE-G06769510

PATIENT
  Age: 86 Year
  Sex: Female

DRUGS (8)
  1. TAZOBAC EF [Suspect]
     Indication: UROSEPSIS
     Dosage: 4.5 g, 3x/day
     Route: 042
     Dates: start: 20100724, end: 20100731
  2. ROCEPHIN [Suspect]
     Indication: UROSEPSIS
     Dosage: 2 g, 2x/day
     Route: 042
     Dates: start: 20100719, end: 20100723
  3. PANTOZOL [Suspect]
     Indication: GASTROOESOPHAGEAL REFLUX DISEASE
     Dosage: 40 mg, 1x/day
     Route: 048
     Dates: start: 2009
  4. LERCANIDIPINE [Concomitant]
     Dosage: UNK
     Route: 048
     Dates: start: 2006
  5. RAMIPRIL [Concomitant]
     Dosage: UNK
     Route: 048
     Dates: start: 2005
  6. SPIRONOLACTONE [Concomitant]
     Dosage: UNK
     Route: 048
     Dates: start: 2008
  7. THIAMAZOLE [Concomitant]
     Dosage: UNK
     Route: 048
     Dates: start: 2006
  8. TOREM [Concomitant]
     Dosage: UNK
     Route: 048
     Dates: start: 2006

REACTIONS (2)
  - Clostridium difficile colitis [Recovered/Resolved]
  - Dehydration [Recovered/Resolved]
